FAERS Safety Report 6594223-3 (Version None)
Quarter: 2010Q1

REPORT INFORMATION
  Report Type: 
  Country: None (occurrence: None)
  Receive Date: 20100218
  Receipt Date: 20100218
  Transmission Date: 20100710
  Serious: Yes (Other)
  Sender: FDA-Public Use
  Company Number: None

PATIENT
  Sex: Male

DRUGS (1)
  1. DIVALPROEX SODIUM [Suspect]
     Indication: CONVULSION
     Dosage: 125MG 4 CAPS 2X DAILY ORAL
     Route: 048

REACTIONS (3)
  - CONDITION AGGRAVATED [None]
  - CONVULSION [None]
  - PRODUCT SUBSTITUTION ISSUE [None]
